FAERS Safety Report 4435590-6 (Version None)
Quarter: 2004Q3

REPORT INFORMATION
  Report Type: 
  Country: None (occurrence: None)
  Receive Date: 20040726
  Receipt Date: 20040517
  Transmission Date: 20050211
  Serious: No
  Sender: FDA-Public Use
  Company Number: USA040567142

PATIENT
  Age: 61 Year
  Sex: Female

DRUGS (12)
  1. FORTEO [Suspect]
     Indication: OSTEOPOROSIS
     Dosage: 20 UG/1 DAY
     Dates: start: 20040506
  2. EVISTA [Suspect]
     Dosage: UNK
     Dates: start: 20020801, end: 20031101
  3. LOTREL [Concomitant]
  4. LEVOXYL [Concomitant]
  5. MACROBID [Concomitant]
  6. VAGIFEM [Concomitant]
  7. XANAX [Concomitant]
  8. ZOCOR [Concomitant]
  9. CALTRATE + D [Concomitant]
  10. ONE A DAY 50+ MULTIVITAMIN [Concomitant]
  11. VITAMIN C [Concomitant]
  12. FOSAMAX [Concomitant]

REACTIONS (5)
  - ANXIETY [None]
  - DIZZINESS [None]
  - HEART RATE INCREASED [None]
  - HOT FLUSH [None]
  - NIGHT SWEATS [None]
